FAERS Safety Report 20171212 (Version 1)
Quarter: 2021Q4

REPORT INFORMATION
  Report Type: Spontaneous
  Country: US (occurrence: None)
  Receive Date: 20211210
  Receipt Date: 20211210
  Transmission Date: 20220303
  Serious: Yes (Death)
  Sender: FDA-Public Use
  Company Number: None

PATIENT
  Sex: Male

DRUGS (10)
  1. ESBRIET [Suspect]
     Active Substance: PIRFENIDONE
     Indication: Idiopathic pulmonary fibrosis
     Dosage: FREQUENCY : 3 TIMES A DAY;?
     Route: 048
     Dates: start: 20190327, end: 20211209
  2. BRILINTA TAB [Concomitant]
  3. CRESTOR TAB [Concomitant]
  4. GLIMEPIRIDE TAB [Concomitant]
  5. HYDROCHLOROT TAB [Concomitant]
  6. LOSARTAN POT TAB [Concomitant]
  7. METFORMIN TAB [Concomitant]
  8. METOPROL sue TAB [Concomitant]
  9. SPIRIVA [Concomitant]
     Active Substance: TIOTROPIUM BROMIDE MONOHYDRATE
  10. TAMSULOSIN [Concomitant]
     Active Substance: TAMSULOSIN

REACTIONS (1)
  - Death [None]
